FAERS Safety Report 7520041-5 (Version None)
Quarter: 2011Q2

REPORT INFORMATION
  Report Type: 
  Country: None (occurrence: None)
  Receive Date: 20110602
  Receipt Date: 20110520
  Transmission Date: 20111010
  Serious: Yes (Other)
  Sender: FDA-Public Use
  Company Number: CA-MYLANLABS-2011S1011307

PATIENT
  Age: 48 Year
  Sex: Female

DRUGS (2)
  1. MELPHALAN HYDROCHLORIDE [Suspect]
     Indication: LIGHT CHAIN DISEASE
  2. FILGRASTIM [Concomitant]

REACTIONS (3)
  - BACTERAEMIA [None]
  - RENAL FAILURE CHRONIC [None]
  - PNEUMONIA [None]
